FAERS Safety Report 25192658 (Version 2)
Quarter: 2025Q2

REPORT INFORMATION
  Report Type: Spontaneous
  Country: US (occurrence: US)
  Receive Date: 20250414
  Receipt Date: 20250521
  Transmission Date: 20250716
  Serious: Yes (Other)
  Sender: ELI LILLY AND COMPANY
  Company Number: US-ELI_LILLY_AND_COMPANY-US202504003468

PATIENT
  Age: 68 Year
  Sex: Female

DRUGS (3)
  1. FORTEO [Suspect]
     Active Substance: TERIPARATIDE
     Indication: Product used for unknown indication
     Route: 065
     Dates: start: 2023, end: 2023
  2. FORTEO [Suspect]
     Active Substance: TERIPARATIDE
     Route: 065
  3. FORTEO [Suspect]
     Active Substance: TERIPARATIDE
     Route: 065
     Dates: start: 20250301, end: 20250505

REACTIONS (5)
  - Jaw disorder [Unknown]
  - Pain in extremity [Unknown]
  - Hypokinesia [Unknown]
  - Pain [Recovered/Resolved]
  - Pain [Unknown]
